FAERS Safety Report 18826414 (Version 1)
Quarter: 2021Q1

REPORT INFORMATION
  Report Type: Spontaneous
  Country: US (occurrence: US)
  Receive Date: 20210201
  Receipt Date: 20210201
  Transmission Date: 20210419
  Serious: No
  Sender: FDA-Public Use
  Company Number: US-ABBVIE-20K-163-3397130-00

PATIENT
  Age: 60 Year
  Sex: Male

DRUGS (1)
  1. HUMIRA [Suspect]
     Active Substance: ADALIMUMAB
     Indication: CROHN^S DISEASE
     Route: 058

REACTIONS (10)
  - Wrong technique in product usage process [Unknown]
  - Anxiety [Unknown]
  - Drug ineffective [Unknown]
  - Nervousness [Unknown]
  - Pain [Unknown]
  - Abdominal discomfort [Unknown]
  - Injection site haemorrhage [Unknown]
  - Weight decreased [Unknown]
  - Scar [Unknown]
  - Nausea [Unknown]

NARRATIVE: CASE EVENT DATE: 20200505
